FAERS Safety Report 8353305-6 (Version None)
Quarter: 2012Q2

REPORT INFORMATION
  Report Type: 
  Country: None (occurrence: None)
  Receive Date: 20120511
  Receipt Date: 20120504
  Transmission Date: 20120825
  Serious: Yes (Other)
  Sender: FDA-Public Use
  Company Number: US-FRI-1000030306

PATIENT
  Sex: Female

DRUGS (5)
  1. LEVOTHROID [Suspect]
  2. VITAMIN D [Suspect]
  3. XANAX [Suspect]
     Dates: start: 20100101
  4. ATROVENT [Suspect]
  5. CALCIUM [Suspect]

REACTIONS (3)
  - FEELING ABNORMAL [None]
  - DIZZINESS [None]
  - BIPOLAR DISORDER [None]
